FAERS Safety Report 4652874-7 (Version None)
Quarter: 2005Q2

REPORT INFORMATION
  Report Type: 
  Country: None (occurrence: None)
  Receive Date: 20050502
  Receipt Date: 20050422
  Transmission Date: 20051028
  Serious: No
  Sender: FDA-Public Use
  Company Number: 2005PK00508

PATIENT
  Age: 62 Year
  Sex: Female
  Weight: 62 kg

DRUGS (2)
  1. NAROPIN [Suspect]
     Dosage: 300 MGDAILY PNEU
     Route: 053
  2. XYLONEST [Suspect]
     Dosage: 200 MG DAILY, PNEU
     Route: 053

REACTIONS (6)
  - ANAESTHETIC COMPLICATION [None]
  - CONVULSION [None]
  - EXTRASYSTOLES [None]
  - IATROGENIC INJURY [None]
  - INCORRECT ROUTE OF DRUG ADMINISTRATION [None]
  - TACHYCARDIA [None]
